FAERS Safety Report 15616866 (Version 6)
Quarter: 2022Q1

REPORT INFORMATION
  Report Type: Report from Study
  Country: US (occurrence: None)
  Receive Date: 20181114
  Receipt Date: 20220119
  Transmission Date: 20220423
  Serious: Yes (Hospitalization, Other)
  Sender: FDA-Public Use
  Company Number: US-ROCHE-2210375

PATIENT
  Age: 54 Year
  Sex: Female
  Weight: 65 kg

DRUGS (4)
  1. ATEZOLIZUMAB [Suspect]
     Active Substance: ATEZOLIZUMAB
     Indication: Cholangiocarcinoma
     Dosage: MOST RECENT DOSE PRIOR TO AE 24/APR/2018
     Route: 042
     Dates: start: 20180423
  2. COBIMETINIB [Suspect]
     Active Substance: COBIMETINIB
     Indication: Cholangiocarcinoma
     Dosage: MOST RECENT DOSE PRIOR TO AE 06/MAY/2018 (840 MG)
     Route: 048
     Dates: start: 20180423
  3. CISPLATIN [Concomitant]
     Active Substance: CISPLATIN
     Dates: start: 201705, end: 201707
  4. GEMCITABINE HYDROCHLORIDE [Concomitant]
     Active Substance: GEMCITABINE HYDROCHLORIDE
     Dates: start: 201705, end: 201707

REACTIONS (12)
  - Dehydration [Recovered/Resolved]
  - Encephalopathy [Recovering/Resolving]
  - Pancytopenia [Unknown]
  - Immune-mediated encephalitis [Unknown]
  - Anaemia [Unknown]
  - Hyperglycaemia [Unknown]
  - Hypertension [Unknown]
  - Leukocytosis [Unknown]
  - Lymphocyte count decreased [Unknown]
  - Rash pustular [Unknown]
  - Platelet count decreased [Unknown]
  - Nervous system disorder [Recovering/Resolving]

NARRATIVE: CASE EVENT DATE: 20180505
